FAERS Safety Report 9249849 (Version 1)
Quarter: 2013Q2

REPORT INFORMATION
  Report Type: Report from Study
  Country: CA (occurrence: CA)
  Receive Date: 20130423
  Receipt Date: 20130423
  Transmission Date: 20140414
  Serious: Yes (Other)
  Sender: FDA-Public Use
  Company Number: PHHY2013CA038384

PATIENT
  Sex: Female

DRUGS (4)
  1. GILENYA [Suspect]
     Indication: RELAPSING-REMITTING MULTIPLE SCLEROSIS
     Dosage: 0.5 MG, QD
     Route: 048
     Dates: start: 20111221, end: 20130124
  2. IMOVANE [Concomitant]
  3. CELEXA [Concomitant]
  4. PRAMIPEXOLE [Concomitant]

REACTIONS (2)
  - Abdominal distension [Unknown]
  - Local swelling [Unknown]
